FAERS Safety Report 5338574-9 (Version None)
Quarter: 2007Q2

REPORT INFORMATION
  Report Type: 
  Country: None (occurrence: None)
  Receive Date: 20070530
  Receipt Date: 20070521
  Transmission Date: 20071010
  Serious: Yes (Other)
  Sender: FDA-Public Use
  Company Number: DK-ASTRAZENECA-2007SE02815

PATIENT
  Age: 8726 Day
  Sex: Female
  Weight: 70 kg

DRUGS (6)
  1. SEROQUEL [Suspect]
     Indication: SCHIZOPHRENIA
     Route: 048
     Dates: start: 20041024, end: 20060601
  2. SEROQUEL [Suspect]
     Dosage: DOSE INCREASE UP TO 800 MG
     Dates: start: 20060601, end: 20060801
  3. SEROQUEL [Suspect]
     Route: 048
     Dates: start: 20060801
  4. SEROQUEL [Suspect]
     Route: 048
  5. TRUXAL [Concomitant]
     Indication: ANXIETY
     Route: 048
     Dates: start: 20050301
  6. TELFAST [Concomitant]
     Indication: SEASONAL ALLERGY

REACTIONS (1)
  - NEUTROPENIA [None]
